APPROVED DRUG PRODUCT: BRIMONIDINE TARTRATE
Active Ingredient: BRIMONIDINE TARTRATE
Strength: 0.1%
Dosage Form/Route: SOLUTION/DROPS;OPHTHALMIC
Application: A217599 | Product #001
Applicant: UPSHER SMITH LABORATORIES LLC
Approved: Jul 30, 2025 | RLD: No | RS: No | Type: DISCN